FAERS Safety Report 4940677-5 (Version None)
Quarter: 2006Q1

REPORT INFORMATION
  Report Type: 
  Country: None (occurrence: None)
  Receive Date: 20060127
  Receipt Date: 20051207
  Transmission Date: 20060701
  Serious: Yes (Other)
  Sender: FDA-Public Use
  Company Number: 2005146157

PATIENT
  Age: 25 Year
  Sex: Male

DRUGS (7)
  1. LYRICA [Suspect]
     Indication: CONVULSION
     Dosage: 100 MG (50 MG,2 IN 1 D)
     Dates: start: 20051006
  2. DEPAKOTE [Concomitant]
  3. PEGANONE (ETHOTOIN) [Concomitant]
  4. ABILIFY [Concomitant]
  5. REMERON [Concomitant]
  6. FOLIC ACID [Concomitant]
  7. MULTIVITAMIN [Concomitant]

REACTIONS (2)
  - DRY SKIN [None]
  - RASH [None]
